FAERS Safety Report 10189867 (Version 1)
Quarter: 2014Q2

REPORT INFORMATION
  Report Type: Spontaneous
  Country: US (occurrence: US)
  Receive Date: 20140522
  Receipt Date: 20140522
  Transmission Date: 20141212
  Serious: Yes (Hospitalization)
  Sender: FDA-Public Use
  Company Number: US-SANOFI-AVENTIS-2013SA066859

PATIENT
  Sex: Male

DRUGS (6)
  1. LANTUS SOLOSTAR [Suspect]
     Indication: TYPE 2 DIABETES MELLITUS
     Dosage: DOSE:22 UNIT(S)
     Route: 058
     Dates: start: 2009
  2. LANTUS SOLOSTAR [Suspect]
     Indication: TYPE 2 DIABETES MELLITUS
     Dosage: DOSE:5 UNIT(S)
     Route: 058
  3. SOLOSTAR [Suspect]
     Indication: TYPE 2 DIABETES MELLITUS
     Dates: start: 2009
  4. HUMALOG [Suspect]
     Route: 065
  5. NOVOLOG [Concomitant]
  6. LEVEMIR [Concomitant]

REACTIONS (7)
  - Hypoglycaemia [Unknown]
  - Convulsion [Unknown]
  - Lip injury [Unknown]
  - Fall [Unknown]
  - Memory impairment [Unknown]
  - Blood glucose increased [Unknown]
  - Weight decreased [Unknown]
